FAERS Safety Report 6530283-3 (Version None)
Quarter: 2010Q1

REPORT INFORMATION
  Report Type: 
  Country: None (occurrence: None)
  Receive Date: 20100107
  Receipt Date: 20091229
  Transmission Date: 20100710
  Serious: Yes (Other)
  Sender: FDA-Public Use
  Company Number: DE9136606AUG2002

PATIENT
  Sex: Male
  Weight: 8.5 kg

DRUGS (12)
  1. REFACTO [Suspect]
     Indication: FACTOR VIII DEFICIENCY
     Route: 042
     Dates: start: 20020519, end: 20020519
  2. REFACTO [Suspect]
     Route: 042
     Dates: start: 20020520, end: 20020520
  3. REFACTO [Suspect]
     Route: 042
     Dates: start: 20020523, end: 20020523
  4. REFACTO [Suspect]
     Route: 042
     Dates: start: 20020530, end: 20020530
  5. REFACTO [Suspect]
     Route: 042
     Dates: start: 20020630, end: 20020630
  6. REFACTO [Suspect]
     Route: 042
     Dates: start: 20020706, end: 20020706
  7. REFACTO [Suspect]
     Route: 042
     Dates: start: 20020711, end: 20020711
  8. REFACTO [Suspect]
     Route: 042
     Dates: start: 20020722, end: 20020722
  9. REFACTO [Suspect]
     Route: 042
     Dates: start: 20020819, end: 20020819
  10. REFACTO [Suspect]
     Route: 042
     Dates: start: 20020919, end: 20020919
  11. REFACTO [Suspect]
     Route: 042
     Dates: start: 20021002
  12. REFACTO [Suspect]
     Route: 042
     Dates: start: 20010411, end: 20010411

REACTIONS (3)
  - BLOOD LACTATE DEHYDROGENASE INCREASED [None]
  - DRUG SPECIFIC ANTIBODY PRESENT [None]
  - FREE HAEMOGLOBIN PRESENT [None]
